FAERS Safety Report 12910543 (Version 2)
Quarter: 2017Q1

REPORT INFORMATION
  Report Type: Spontaneous
  Country: US (occurrence: US)
  Receive Date: 20161104
  Receipt Date: 20170116
  Transmission Date: 20170428
  Serious: Yes (Hospitalization)
  Sender: FDA-Public Use
  Company Number: US-JNJFOC-20161001265

PATIENT
  Age: 72 Year
  Sex: Female

DRUGS (4)
  1. XARELTO [Suspect]
     Active Substance: RIVAROXABAN
     Indication: DEEP VEIN THROMBOSIS
     Route: 048
     Dates: start: 20150310, end: 20160508
  2. XARELTO [Suspect]
     Active Substance: RIVAROXABAN
     Indication: DEEP VEIN THROMBOSIS
     Route: 048
     Dates: end: 20160602
  3. XARELTO [Suspect]
     Active Substance: RIVAROXABAN
     Indication: HYPERCOAGULATION
     Route: 048
     Dates: end: 20160602
  4. XARELTO [Suspect]
     Active Substance: RIVAROXABAN
     Indication: HYPERCOAGULATION
     Route: 048
     Dates: start: 20150310, end: 20160508

REACTIONS (2)
  - Haematemesis [Recovering/Resolving]
  - Gastritis erosive [Unknown]

NARRATIVE: CASE EVENT DATE: 20160508
